FAERS Safety Report 16398251 (Version 1)
Quarter: 2019Q2

REPORT INFORMATION
  Report Type: Spontaneous
  Country: CA (occurrence: CA)
  Receive Date: 20190606
  Receipt Date: 20190606
  Transmission Date: 20190711
  Serious: Yes (Other)
  Sender: FDA-Public Use
  Company Number: CA-PFIZER INC-2019241274

PATIENT
  Age: 59 Year
  Sex: Male

DRUGS (4)
  1. METHOTREXATE SODIUM. [Suspect]
     Active Substance: METHOTREXATE SODIUM
     Indication: RHEUMATOID ARTHRITIS
     Dosage: 20 MG, UNK
     Route: 058
     Dates: start: 201406, end: 201710
  2. HUMIRA [Concomitant]
     Active Substance: ADALIMUMAB
     Dosage: 40 MG, EVERY 2 WEEKS
     Route: 058
     Dates: start: 20110321, end: 20140815
  3. LEFLUNOMIDE. [Concomitant]
     Active Substance: LEFLUNOMIDE
     Dosage: 20 MG, UNK
     Dates: start: 201409, end: 201601
  4. SIMPONI [Concomitant]
     Active Substance: GOLIMUMAB
     Dosage: 50 MG MONTLY
     Route: 058
     Dates: start: 20160825, end: 20170620

REACTIONS (2)
  - Drug ineffective [Unknown]
  - Gastrointestinal disorder [Unknown]
